FAERS Safety Report 5088202-5 (Version None)
Quarter: 2006Q3

REPORT INFORMATION
  Report Type: 
  Country: None (occurrence: None)
  Receive Date: 20060727
  Receipt Date: 20060627
  Transmission Date: 20061208
  Serious: Yes (Other)
  Sender: FDA-Public Use
  Company Number: 2006080673

PATIENT
  Age: 52 Year
  Sex: Female

DRUGS (6)
  1. LYRICA [Suspect]
     Indication: DRUG USE FOR UNKNOWN INDICATION
     Dosage: 150 MG (75 MG, 2 IN 1 D)
     Route: 065
  2. NADOLOL [Concomitant]
  3. DILTIAZEM HYDROCHLORIDE [Concomitant]
  4. TEMAZEPAM [Concomitant]
  5. CYANOCOBALAMIN [Concomitant]
  6. LORTAB [Concomitant]

REACTIONS (1)
  - OCULOGYRATION [None]
